FAERS Safety Report 6760167-7 (Version None)
Quarter: 2010Q2

REPORT INFORMATION
  Report Type: 
  Country: None (occurrence: None)
  Receive Date: 20100524
  Receipt Date: 20100329
  Transmission Date: 20101027
  Serious: No
  Sender: FDA-Public Use
  Company Number: 003504

PATIENT
  Sex: Female
  Weight: 45.3 kg

DRUGS (3)
  1. CIMZIA [Suspect]
     Indication: CROHN'S DISEASE
     Dosage: (400 MG, 00 MG SUBCUTANEOUS)
     Route: 058
     Dates: start: 20091123
  2. VITAMIN B-12 [Concomitant]
  3. MULTI-VITAMINS [Concomitant]

REACTIONS (7)
  - BODY TEMPERATURE INCREASED [None]
  - BRONCHITIS [None]
  - DRUG INEFFECTIVE [None]
  - FLATULENCE [None]
  - HEADACHE [None]
  - NASAL CONGESTION [None]
  - PAIN [None]
